FAERS Safety Report 15559342 (Version 1)
Quarter: 2018Q4

REPORT INFORMATION
  Report Type: Spontaneous
  Country: GB (occurrence: GB)
  Receive Date: 20181029
  Receipt Date: 20181029
  Transmission Date: 20190205
  Serious: Yes (Other)
  Sender: FDA-Public Use
  Company Number: GB-ROCHE-2206303

PATIENT
  Age: 54 Year

DRUGS (7)
  1. ELTROMBOPAG [Suspect]
     Active Substance: ELTROMBOPAG
     Indication: IMMUNE THROMBOCYTOPENIC PURPURA
     Dosage: 50 MG, QD
     Route: 065
  2. HUMAN NORMAL IMMUNOGLOBULIN [Suspect]
     Active Substance: HUMAN IMMUNOGLOBULIN G
     Indication: IMMUNE THROMBOCYTOPENIC PURPURA
     Route: 065
  3. MYCOPHENOLATE MOFETIL. [Suspect]
     Active Substance: MYCOPHENOLATE MOFETIL
     Indication: IMMUNE THROMBOCYTOPENIC PURPURA
     Dosage: 1 G, QD
     Route: 065
  4. RITUXIMAB. [Suspect]
     Active Substance: RITUXIMAB
     Indication: IMMUNE THROMBOCYTOPENIC PURPURA
     Dosage: COMPLETED 4 THERAPIES; ;
     Route: 065
  5. PREDNISOLONE. [Suspect]
     Active Substance: PREDNISOLONE
     Indication: IMMUNE THROMBOCYTOPENIC PURPURA
     Dosage: 40 MG, QD, REDUCED AFTER 2 DAYS
     Route: 065
  6. PREDNISOLONE. [Suspect]
     Active Substance: PREDNISOLONE
     Indication: IMMUNE THROMBOCYTOPENIC PURPURA
     Dosage: 10 MG, QOD;
     Route: 065
  7. PREDNISOLONE. [Suspect]
     Active Substance: PREDNISOLONE
     Dosage: 60 MG, QD
     Route: 065

REACTIONS (6)
  - Petechiae [Recovered/Resolved]
  - Contusion [Recovered/Resolved]
  - Blister [Recovered/Resolved]
  - Off label use [Unknown]
  - Headache [Recovered/Resolved]
  - Product use in unapproved indication [Unknown]
